FAERS Safety Report 22314833 (Version 7)
Quarter: 2025Q1

REPORT INFORMATION
  Report Type: Spontaneous
  Country: US (occurrence: US)
  Receive Date: 20230512
  Receipt Date: 20250328
  Transmission Date: 20250408
  Serious: Yes (Other)
  Sender: VERTEX
  Company Number: US-VERTEX PHARMACEUTICALS-2023-006761

PATIENT

DRUGS (2)
  1. TRIKAFTA [Suspect]
     Active Substance: ELEXACAFTOR\IVACAFTOR\TEZACAFTOR
     Indication: Cystic fibrosis
     Route: 048
  2. TRIKAFTA [Suspect]
     Active Substance: ELEXACAFTOR\IVACAFTOR\TEZACAFTOR
     Route: 048

REACTIONS (10)
  - Suicidal ideation [Unknown]
  - Hunger [Unknown]
  - Myoclonus [Unknown]
  - Mental disorder [Unknown]
  - Gastrointestinal obstruction [Unknown]
  - Quality of life decreased [Unknown]
  - Nervous system disorder [Not Recovered/Not Resolved]
  - Pain [Not Recovered/Not Resolved]
  - Cystic fibrosis related diabetes [Unknown]
  - Acne [Unknown]
